FAERS Safety Report 8173305-9 (Version None)
Quarter: 2012Q1

REPORT INFORMATION
  Report Type: 
  Country: None (occurrence: None)
  Receive Date: 20120229
  Receipt Date: 20120223
  Transmission Date: 20120608
  Serious: Yes (Other)
  Sender: FDA-Public Use
  Company Number: DE-JNJFOC-20120212764

PATIENT
  Sex: Male

DRUGS (2)
  1. MINOXIDIL [Suspect]
     Indication: PRODUCT USED FOR UNKNOWN INDICATION
     Route: 061
  2. MINOXIDIL [Suspect]
     Route: 061

REACTIONS (15)
  - TINNITUS [None]
  - PALPITATIONS [None]
  - VISUAL IMPAIRMENT [None]
  - BLOOD PRESSURE ABNORMAL [None]
  - BURNING SENSATION [None]
  - PRURITUS GENERALISED [None]
  - ASTHMA [None]
  - HAIR COLOUR CHANGES [None]
  - ORAL MUCOSAL ERYTHEMA [None]
  - OROPHARYNGEAL PAIN [None]
  - GENERALISED OEDEMA [None]
  - HAIR TEXTURE ABNORMAL [None]
  - ALOPECIA [None]
  - EYE INFLAMMATION [None]
  - EPISTAXIS [None]
